FAERS Safety Report 7452287 (Version 2)
Quarter: 2022Q1

REPORT INFORMATION
  Report Type: Report from Study
  Country: US (occurrence: US)
  Receive Date: 20100702
  Receipt Date: 20220119
  Transmission Date: 20220424
  Serious: Yes (Hospitalization, Other)
  Sender: FDA-Public Use
  Company Number: US-PFIZER INC-2010078598

PATIENT
  Age: 65 Year
  Sex: Female
  Weight: 83.91 kg

DRUGS (2)
  1. SUNITINIB MALATE [Suspect]
     Active Substance: SUNITINIB MALATE
     Indication: Endometrial cancer
     Dosage: 50 MG, CYCLIC, DAILY (DAYS 1-28)
     Route: 048
     Dates: start: 20100322, end: 20100527
  2. HYDROXYCHLOROQUINE SULFATE [Suspect]
     Active Substance: HYDROXYCHLOROQUINE SULFATE
     Indication: Endometrial cancer
     Dosage: 200 MG, CYCLIC, DAILY (DAYS 4-42 AND CYCLE 2+, DAILY ON DAYS 1-42)
     Route: 048
     Dates: start: 20100325, end: 20100608

REACTIONS (9)
  - Dyspnoea [Not Recovered/Not Resolved]
  - Dysgeusia [Not Recovered/Not Resolved]
  - Muscular weakness [Not Recovered/Not Resolved]
  - Lipase increased [Not Recovered/Not Resolved]
  - Amylase increased [Not Recovered/Not Resolved]
  - Small intestinal obstruction [Not Recovered/Not Resolved]
  - Abdominal pain [Not Recovered/Not Resolved]
  - Gait disturbance [Not Recovered/Not Resolved]
  - Fatigue [Not Recovered/Not Resolved]

NARRATIVE: CASE EVENT DATE: 20100608
